FAERS Safety Report 9133741 (Version 1)
Quarter: 2013Q1

REPORT INFORMATION
  Report Type: Other
  Country: CN (occurrence: CN)
  Receive Date: 20130303
  Receipt Date: 20130303
  Transmission Date: 20140127
  Serious: Yes (Other)
  Sender: FDA-Public Use
  Company Number: CN-US-EMD SERONO, INC.-7195770

PATIENT
  Age: 16 Year
  Sex: Female

DRUGS (1)
  1. INTERFERON BETA-1A [Suspect]
     Indication: MULTIPLE SCLEROSIS
     Route: 058
     Dates: start: 2011

REACTIONS (1)
  - Acute disseminated encephalomyelitis [Recovered/Resolved]
